FAERS Safety Report 4690446-9 (Version None)
Quarter: 2005Q2

REPORT INFORMATION
  Report Type: 
  Country: None (occurrence: None)
  Receive Date: 20050615
  Receipt Date: 20050601
  Transmission Date: 20051028
  Serious: Yes (Other)
  Sender: FDA-Public Use
  Company Number: 2005AP03190

PATIENT
  Age: 75 Year
  Sex: Male

DRUGS (6)
  1. CARBOCAIN [Suspect]
     Indication: EPIDURAL ANAESTHESIA
     Route: 008
  2. DIPRIVAN [Suspect]
     Route: 042
  3. ANAPEINE [Suspect]
     Indication: EPIDURAL ANAESTHESIA
     Route: 008
  4. VECURONIUM BROMIDE [Concomitant]
  5. OXYGEN [Concomitant]
     Route: 055
  6. SEVOFLURANE [Concomitant]
     Route: 055

REACTIONS (2)
  - DELAYED RECOVERY FROM ANAESTHESIA [None]
  - SPINAL CORD INFARCTION [None]
